FAERS Safety Report 23681421 (Version 1)
Quarter: 2024Q1

REPORT INFORMATION
  Report Type: Spontaneous
  Country: NL (occurrence: NL)
  Receive Date: 20240328
  Receipt Date: 20240328
  Transmission Date: 20240409
  Serious: Yes (Other)
  Sender: FDA-Public Use
  Company Number: NL-002147023-NVSC2024NL051205

PATIENT
  Age: 70 Year
  Sex: Female
  Weight: 55 kg

DRUGS (3)
  1. CELLCEPT [Suspect]
     Active Substance: MYCOPHENOLATE MOFETIL
     Indication: Lung transplant
     Route: 065
     Dates: start: 20180108
  2. CERTICAN [Suspect]
     Active Substance: EVEROLIMUS
     Indication: Lung transplant
     Dosage: 2 MG, QD (0.75 MG AND 0.25 MG TWICE DAILY)
     Route: 065
  3. CERTICAN [Suspect]
     Active Substance: EVEROLIMUS
     Route: 065

REACTIONS (5)
  - Polyneuropathy [Not Recovered/Not Resolved]
  - Drug level below therapeutic [Not Recovered/Not Resolved]
  - Gait disturbance [Not Recovered/Not Resolved]
  - Pain in extremity [Not Recovered/Not Resolved]
  - Product use in unapproved indication [Unknown]
